FAERS Safety Report 6719215-2 (Version None)
Quarter: 2010Q2

REPORT INFORMATION
  Report Type: 
  Country: None (occurrence: None)
  Receive Date: 20100507
  Receipt Date: 20100427
  Transmission Date: 20101027
  Serious: Yes (Death)
  Sender: FDA-Public Use
  Company Number: 573906

PATIENT
  Age: 48 Year
  Sex: Male

DRUGS (3)
  1. FLUDARABINE PHOSPHATE [Suspect]
     Indication: MYELOID LEUKAEMIA
     Dosage: 38.5 MG/M2 MILLIGRAM(S)/SQ. METER, INTRAVENOUS DRIP
     Route: 041
  2. CYCLOPHOSPHAMIDE [Concomitant]
  3. (THERAPEUTIC RADIOPHARMACEUTICALS) [Concomitant]

REACTIONS (10)
  - COMA [None]
  - CSF MYELIN BASIC PROTEIN INCREASED [None]
  - ENCEPHALOPATHY [None]
  - EXTENSOR PLANTAR RESPONSE [None]
  - HYPERREFLEXIA [None]
  - HYPOAESTHESIA [None]
  - MUSCULAR WEAKNESS [None]
  - NEUROTOXICITY [None]
  - RETINAL EXUDATES [None]
  - VISUAL IMPAIRMENT [None]
